FAERS Safety Report 14311978 (Version 1)
Quarter: 2017Q4

REPORT INFORMATION
  Report Type: Spontaneous
  Country: BG (occurrence: BG)
  Receive Date: 20171221
  Receipt Date: 20171221
  Transmission Date: 20180321
  Serious: Yes (Life-Threatening, Hospitalization, Other)
  Sender: FDA-Public Use
  Company Number: BG-CIPLA LTD.-2017BG25068

PATIENT

DRUGS (1)
  1. AMLODIPINE [Suspect]
     Active Substance: AMLODIPINE BESYLATE
     Indication: HYPERTENSION
     Dosage: UNK, OVER 10MG DAILY
     Route: 065

REACTIONS (4)
  - Flushing [Unknown]
  - Oedema peripheral [Unknown]
  - Headache [Unknown]
  - Product use issue [Unknown]
